FAERS Safety Report 6116255-1 (Version None)
Quarter: 2009Q1

REPORT INFORMATION
  Report Type: 
  Country: None (occurrence: None)
  Receive Date: 20090314
  Receipt Date: 20081204
  Transmission Date: 20090719
  Serious: No
  Sender: FDA-Public Use
  Company Number: US-ABBOTT-08P-163-0491122-00

PATIENT
  Sex: Female
  Weight: 68.1 kg

DRUGS (6)
  1. HUMIRA [Suspect]
     Indication: PSORIATIC ARTHROPATHY
     Route: 058
     Dates: start: 20080801, end: 20081001
  2. HUMIRA [Suspect]
     Route: 058
  3. CIRRUS [Concomitant]
     Indication: SEASONAL ALLERGY
     Route: 048
  4. CIRRUS [Concomitant]
     Indication: HYPERSENSITIVITY
  5. METHYLPHENIDATE HCL [Concomitant]
     Indication: ATTENTION DEFICIT/HYPERACTIVITY DISORDER
     Route: 048
  6. METHYLPHENIDATE HCL [Concomitant]
     Route: 048

REACTIONS (5)
  - INJECTION SITE ERYTHEMA [None]
  - INJECTION SITE IRRITATION [None]
  - INJECTION SITE PAPULE [None]
  - PRURITUS [None]
  - RESPIRATORY TRACT INFECTION [None]
